FAERS Safety Report 6808320-8 (Version None)
Quarter: 2010Q2

REPORT INFORMATION
  Report Type: 
  Country: None (occurrence: None)
  Receive Date: 20100629
  Receipt Date: 20090602
  Transmission Date: 20101027
  Serious: Yes (Hospitalization, Other)
  Sender: FDA-Public Use
  Company Number: US-PFIZER INC-2009199180

PATIENT
  Sex: Female
  Weight: 77.098 kg

DRUGS (11)
  1. XANAX [Suspect]
     Indication: ANXIETY
     Dosage: UNK
     Route: 048
     Dates: start: 19840101
  2. LUVOX [Concomitant]
     Dosage: UNK
  3. OLMESARTAN [Concomitant]
  4. ROSUVASTATIN [Concomitant]
     Dosage: UNK
  5. MAGNESIUM [Concomitant]
  6. CITRACAL [Concomitant]
  7. LANSOPRAZOLE [Concomitant]
     Dosage: UNK
  8. AMLODIPINE [Concomitant]
     Dosage: UNK
  9. LOSARTAN [Concomitant]
     Dosage: UNK
  10. TRIAMTERENE AND HYDROCHLOROTHIAZID ^HARRIS^ [Concomitant]
     Dosage: UNK
  11. POTASSIUM [Concomitant]

REACTIONS (5)
  - BLOOD CHOLESTEROL INCREASED [None]
  - DRUG DEPENDENCE [None]
  - INFECTION [None]
  - MUSCLE INJURY [None]
  - WITHDRAWAL SYNDROME [None]
